FAERS Safety Report 9775239 (Version 1)
Quarter: 2013Q4

REPORT INFORMATION
  Report Type: Spontaneous
  Country: NL (occurrence: NL)
  Receive Date: 20131220
  Receipt Date: 20131220
  Transmission Date: 20140711
  Serious: Yes (Hospitalization)
  Sender: FDA-Public Use
  Company Number: NL-JNJFOC-20131209663

PATIENT
  Age: 44 Year
  Sex: Female
  Weight: 90 kg

DRUGS (2)
  1. HALDOL DECANOATE [Suspect]
     Indication: MANIA
     Dosage: 50 MG/ML
     Route: 048
     Dates: start: 20131116
  2. HALDOL DECANOATE [Suspect]
     Indication: MANIA
     Route: 048
     Dates: end: 20131126

REACTIONS (10)
  - Restlessness [Recovering/Resolving]
  - Dry mouth [Recovering/Resolving]
  - Photophobia [Recovering/Resolving]
  - Hypertension [Recovering/Resolving]
  - Decreased appetite [Recovering/Resolving]
  - Myalgia [Recovering/Resolving]
  - Injection site pain [Recovering/Resolving]
  - Constipation [Recovering/Resolving]
  - Off label use [Unknown]
  - Off label use [Unknown]
